FAERS Safety Report 7939632-2 (Version None)
Quarter: 2011Q4

REPORT INFORMATION
  Report Type: 
  Country: None (occurrence: None)
  Receive Date: 20111125
  Receipt Date: 20111110
  Transmission Date: 20120403
  Serious: Yes (Hospitalization)
  Sender: FDA-Public Use
  Company Number: PHFR2011IE006471

PATIENT
  Sex: Female

DRUGS (2)
  1. CLOZARIL [Suspect]
     Dosage: TOOK 600 MG INSTEAD
     Route: 048
     Dates: start: 20070828
  2. CLOZARIL [Suspect]
     Indication: SCHIZOPHRENIA
     Dosage: 200 MG AT NIGHT
     Route: 048

REACTIONS (5)
  - INCORRECT DOSE ADMINISTERED [None]
  - CONFUSIONAL STATE [None]
  - DYSPNOEA [None]
  - OVERDOSE [None]
  - PNEUMONIA [None]
